FAERS Safety Report 4887104-4 (Version None)
Quarter: 2006Q1

REPORT INFORMATION
  Report Type: 
  Country: None (occurrence: None)
  Receive Date: 20060120
  Receipt Date: 20051005
  Transmission Date: 20060701
  Serious: Yes (Other)
  Sender: FDA-Public Use
  Company Number: US-MERCK-0510USA05297

PATIENT
  Age: 75 Year
  Sex: Female
  Weight: 84 kg

DRUGS (17)
  1. VIOXX [Suspect]
     Indication: RHEUMATOID ARTHRITIS
     Route: 048
     Dates: start: 20000510, end: 20040828
  2. VIOXX [Suspect]
     Indication: PAIN
     Route: 048
     Dates: start: 20000510, end: 20040828
  3. ARAVA [Concomitant]
     Route: 065
  4. DETROL [Concomitant]
     Route: 065
  5. POTASSIUM (UNSPECIFIED) [Concomitant]
     Route: 065
  6. FUROSEMIDE [Concomitant]
     Route: 065
  7. DIOVAN [Concomitant]
     Route: 065
  8. METHOTREXATE [Concomitant]
     Route: 065
  9. ZAROXOLYN [Concomitant]
     Route: 065
  10. PREDNISONE [Concomitant]
     Route: 065
  11. FOLIC ACID [Concomitant]
     Route: 065
  12. MIACALCIN [Concomitant]
     Route: 065
  13. HUMULIN [Concomitant]
     Route: 065
  14. LEVOXYL [Concomitant]
     Route: 065
  15. CALCIUM (UNSPECIFIED) AND VITAMIN D (UNSPECIFIED) [Concomitant]
     Route: 065
  16. TYLENOL (CAPLET) [Concomitant]
     Route: 065
  17. ZITHROMAX [Concomitant]
     Route: 065
     Dates: start: 20000710

REACTIONS (11)
  - ANEURYSM [None]
  - ASTHENIA [None]
  - BACK INJURY [None]
  - CARDIOVASCULAR DISORDER [None]
  - CHEST PAIN [None]
  - FALL [None]
  - HAND FRACTURE [None]
  - ISCHAEMIC STROKE [None]
  - OEDEMA [None]
  - ROTATOR CUFF SYNDROME [None]
  - SKIN DISORDER [None]
